FAERS Safety Report 8803782 (Version 1)
Quarter: 2012Q4

REPORT INFORMATION
  Report Type: 
  Country: DK (occurrence: DK)
  Receive Date: 20120924
  Receipt Date: 20120924
  Transmission Date: 20130627
  Serious: Yes (Hospitalization, Disabling)
  Sender: FDA-Public Use
  Company Number: DK-BAYER-2012-091382

PATIENT
  Age: 16 Year
  Sex: Female

DRUGS (2)
  1. YAZ [Suspect]
     Indication: CONTRACEPTION
     Dosage: UNK
     Route: 048
     Dates: start: 200903
  2. MEDICATION FOR INFLUENZA [Concomitant]
     Indication: INFLUENZA

REACTIONS (7)
  - Deep vein thrombosis [Recovered/Resolved with Sequelae]
  - Pain in extremity [None]
  - Skin discolouration [None]
  - Feeling cold [None]
  - Sensory disturbance [None]
  - Muscular weakness [None]
  - Peroneal nerve palsy [Not Recovered/Not Resolved]
